FAERS Safety Report 7572429-4 (Version None)
Quarter: 2011Q2

REPORT INFORMATION
  Report Type: 
  Country: None (occurrence: None)
  Receive Date: 20110624
  Receipt Date: 20110617
  Transmission Date: 20111010
  Serious: Yes (Other)
  Sender: FDA-Public Use
  Company Number: US-ASTRAZENECA-2011SE36989

PATIENT
  Age: 657 Month
  Sex: Female

DRUGS (1)
  1. SEROQUEL [Suspect]
     Route: 048

REACTIONS (8)
  - CEREBROVASCULAR ACCIDENT [None]
  - NIGHTMARE [None]
  - VAGINAL CANCER [None]
  - AGITATION [None]
  - DEPRESSION [None]
  - MENTAL DISORDER [None]
  - THERAPEUTIC RESPONSE UNEXPECTED [None]
  - TACHYPHRENIA [None]
